FAERS Safety Report 16773127 (Version 1)
Quarter: 2019Q3

REPORT INFORMATION
  Report Type: Report from Study
  Country: RU (occurrence: RU)
  Receive Date: 20190904
  Receipt Date: 20190904
  Transmission Date: 20191005
  Serious: Yes (Other)
  Sender: FDA-Public Use
  Company Number: RU-JNJFOC-20190834809

PATIENT

DRUGS (3)
  1. FOLIC ACID. [Concomitant]
     Active Substance: FOLIC ACID
     Route: 065
  2. INFLIXIMAB, RECOMBINANT [Suspect]
     Active Substance: INFLIXIMAB
     Indication: RHEUMATOID ARTHRITIS
     Route: 042
  3. METHOTREXATE. [Concomitant]
     Active Substance: METHOTREXATE

REACTIONS (6)
  - Interferon gamma release assay positive [Unknown]
  - Drug specific antibody present [Unknown]
  - Hypertension [Unknown]
  - Neutropenia [Unknown]
  - Infusion related reaction [Unknown]
  - Asthma [Unknown]
